FAERS Safety Report 12736671 (Version 1)
Quarter: 2016Q3

REPORT INFORMATION
  Report Type: Spontaneous
  Country: US (occurrence: US)
  Receive Date: 20160909
  Receipt Date: 20160909
  Transmission Date: 20161109
  Serious: Yes (Hospitalization)
  Sender: FDA-Public Use
  Company Number: None

PATIENT
  Age: 65 Year
  Sex: Male

DRUGS (15)
  1. POT CHLORIDE [Concomitant]
     Active Substance: POTASSIUM CHLORIDE
  2. RANITIDINE. [Concomitant]
     Active Substance: RANITIDINE
  3. ZOLPIDEM [Concomitant]
     Active Substance: ZOLPIDEM\ZOLPIDEM TARTRATE
  4. FOSRENOL [Concomitant]
     Active Substance: LANTHANUM CARBONATE
  5. MELOXICAM. [Concomitant]
     Active Substance: MELOXICAM
  6. ONDANSETRON [Concomitant]
     Active Substance: ONDANSETRON
  7. SODIUM BICARBONATE. [Concomitant]
     Active Substance: SODIUM BICARBONATE
  8. RENVELA [Concomitant]
     Active Substance: SEVELAMER CARBONATE
  9. GUAIFENESIN. [Concomitant]
     Active Substance: GUAIFENESIN
  10. LEVOTHYROXINE. [Concomitant]
     Active Substance: LEVOTHYROXINE
  11. PANTOPRAZOLE [Concomitant]
     Active Substance: PANTOPRAZOLE SODIUM
  12. VITAMIN D [Concomitant]
     Active Substance: CHOLECALCIFEROL
  13. TRAMADOL. [Concomitant]
     Active Substance: TRAMADOL
  14. REVATIO [Suspect]
     Active Substance: SILDENAFIL CITRATE
     Indication: PULMONARY ARTERIAL HYPERTENSION
     Route: 048
     Dates: start: 20141218
  15. CIPRODEX SUS [Concomitant]

REACTIONS (1)
  - Cerebrovascular accident [None]

NARRATIVE: CASE EVENT DATE: 20160807
